FAERS Safety Report 19978008 (Version 1)
Quarter: 2021Q4

REPORT INFORMATION
  Report Type: Spontaneous
  Country: US (occurrence: US)
  Receive Date: 20211021
  Receipt Date: 20211021
  Transmission Date: 20220303
  Serious: No
  Sender: FDA-Public Use
  Company Number: None

PATIENT
  Age: 65 Year
  Sex: Female
  Weight: 123.75 kg

DRUGS (1)
  1. METFORMIN HYDROCHLORIDE [Suspect]
     Active Substance: METFORMIN HYDROCHLORIDE
     Indication: Diabetes mellitus
     Dosage: ?          QUANTITY:1 TABLET(S);
     Route: 048
     Dates: start: 20210715, end: 20210730

REACTIONS (3)
  - Diarrhoea [None]
  - Dysgeusia [None]
  - Parosmia [None]

NARRATIVE: CASE EVENT DATE: 20210716
